FAERS Safety Report 12109343 (Version 1)
Quarter: 2016Q1

REPORT INFORMATION
  Report Type: Spontaneous
  Country: US (occurrence: None)
  Receive Date: 20160222
  Receipt Date: 20160222
  Transmission Date: 20160526
  Serious: Yes (Life-Threatening)
  Sender: FDA-Public Use
  Company Number: None

PATIENT
  Age: 61 Year
  Sex: Female
  Weight: 66.23 kg

DRUGS (4)
  1. PLAVIX [Suspect]
     Active Substance: CLOPIDOGREL BISULFATE
     Indication: STENT PLACEMENT
     Dosage: 1
     Route: 048
     Dates: start: 20160209, end: 20160218
  2. PLAVIX [Concomitant]
     Active Substance: CLOPIDOGREL BISULFATE
  3. DIOVAN [Concomitant]
     Active Substance: VALSARTAN
  4. XANAX [Concomitant]
     Active Substance: ALPRAZOLAM

REACTIONS (6)
  - Dyspnoea [None]
  - Depressed level of consciousness [None]
  - Malaise [None]
  - Product quality issue [None]
  - Hypersensitivity [None]
  - Lethargy [None]

NARRATIVE: CASE EVENT DATE: 20160218
